FAERS Safety Report 10524064 (Version 1)
Quarter: 2014Q4

REPORT INFORMATION
  Report Type: Spontaneous
  Country: US (occurrence: None)
  Receive Date: 20141015
  Receipt Date: 20141015
  Transmission Date: 20150528
  Serious: Yes (Other)
  Sender: FDA-Public Use
  Company Number: None

PATIENT
  Age: 73 Year
  Sex: Female
  Weight: 51 kg

DRUGS (2)
  1. ZOSYN [Suspect]
     Active Substance: PIPERACILLIN SODIUM\TAZOBACTAM SODIUM
     Route: 042
  2. VANCOMYCIN 1 GRAM HOSPIRA [Suspect]
     Active Substance: VANCOMYCIN
     Route: 042

REACTIONS (2)
  - Erythema [None]
  - Dyspnoea [None]

NARRATIVE: CASE EVENT DATE: 20140927
